FAERS Safety Report 8490069-X (Version None)
Quarter: 2012Q3

REPORT INFORMATION
  Report Type: 
  Country: None (occurrence: None)
  Receive Date: 20120705
  Receipt Date: 20120703
  Transmission Date: 20120928
  Serious: Yes (Other)
  Sender: FDA-Public Use
  Company Number: US-PFIZER INC-2012132706

PATIENT
  Sex: Male
  Weight: 93 kg

DRUGS (3)
  1. SOLU-MEDROL [Suspect]
     Indication: MULTIPLE SCLEROSIS
     Dosage: 1MG
     Route: 042
  2. DEXAMETHASONE [Suspect]
     Indication: MULTIPLE SCLEROSIS RELAPSE
     Dosage: UNK, 4X/DAY
     Route: 048
     Dates: start: 20120201, end: 20120528
  3. COPAXONE [Concomitant]
     Indication: MULTIPLE SCLEROSIS
     Dosage: UNK

REACTIONS (4)
  - MULTIPLE SCLEROSIS RELAPSE [None]
  - DRUG PRESCRIBING ERROR [None]
  - DRUG INEFFECTIVE [None]
  - WEIGHT INCREASED [None]
